FAERS Safety Report 9663766 (Version 5)
Quarter: 2013Q4

REPORT INFORMATION
  Report Type: Report from Study
  Country: US (occurrence: US)
  Receive Date: 20131101
  Receipt Date: 20131206
  Transmission Date: 20140711
  Serious: Yes (Hospitalization)
  Sender: FDA-Public Use
  Company Number: US-ROCHE-1296860

PATIENT
  Age: 49 Year
  Sex: Male
  Weight: 71.6 kg

DRUGS (15)
  1. BLINDED TOCILIZUMAB [Suspect]
     Indication: SYSTEMIC SCLEROSIS
     Dosage: MOST RECENT DOSE 07 MAR 2013.
     Route: 058
     Dates: start: 20120625
  2. TOCILIZUMAB [Suspect]
     Indication: SYSTEMIC SCLEROSIS
     Dosage: MOST RECENT DOSE OF OPEN LABLE STUDY DRUG PRIOR TO AE ONSET ON 23/OCT/2013
     Route: 058
     Dates: start: 20130605
  3. HYDROXYZINE [Concomitant]
     Indication: URTICARIA
     Route: 048
     Dates: start: 20130723
  4. OMEPRAZOL [Concomitant]
     Indication: GASTROOESOPHAGEAL REFLUX DISEASE
     Route: 048
     Dates: start: 201111
  5. IBUPROFEN [Concomitant]
     Indication: MYALGIA
     Route: 048
     Dates: start: 201202
  6. NEOSPORIN [Concomitant]
     Indication: SKIN ULCER
     Route: 061
     Dates: start: 20120801
  7. CALCIUM CARBONATE [Concomitant]
     Indication: GASTROOESOPHAGEAL REFLUX DISEASE
     Route: 048
     Dates: start: 20120801
  8. NORCO [Concomitant]
     Indication: PAIN
     Route: 048
  9. CARVEDILOL [Concomitant]
     Indication: POLYURIA
     Route: 048
     Dates: start: 20131111
  10. KLOR-CON [Concomitant]
     Indication: BLOOD POTASSIUM ABNORMAL
     Route: 048
     Dates: start: 20131111
  11. SIMVASTATIN [Concomitant]
     Route: 048
     Dates: start: 20131101
  12. FUROSEMIDE [Concomitant]
     Indication: POLYURIA
     Route: 048
     Dates: start: 20131111
  13. ASPRIN-EC [Concomitant]
     Route: 048
     Dates: start: 20131101
  14. METHYLPREDNISOLONE [Concomitant]
     Indication: URTICARIA
     Route: 048
     Dates: start: 20130620
  15. METHYLPREDNISOLONE [Concomitant]
     Route: 048
     Dates: start: 20130720

REACTIONS (1)
  - Cardiac failure congestive [Not Recovered/Not Resolved]
